FAERS Safety Report 9705396 (Version 3)
Quarter: 2013Q4

REPORT INFORMATION
  Report Type: Spontaneous
  Country: US (occurrence: US)
  Receive Date: 20131122
  Receipt Date: 20131126
  Transmission Date: 20140711
  Serious: Yes (Other)
  Sender: FDA-Public Use
  Company Number: US-ABBVIE-13P-163-1169621-00

PATIENT
  Sex: Male

DRUGS (13)
  1. HUMIRA [Suspect]
     Indication: CROHN^S DISEASE
     Route: 058
     Dates: start: 201012, end: 201012
  2. HUMIRA [Suspect]
     Dosage: 2 WEEKS AFTER INITIAL DOSE
     Route: 058
     Dates: start: 201012, end: 201012
  3. HUMIRA [Suspect]
     Dosage: 4 WEEKS AFTER INITIAL DOSE
     Route: 058
     Dates: start: 201012, end: 2013
  4. PHENERGAN [Concomitant]
     Indication: PRODUCT USED FOR UNKNOWN INDICATION
  5. XANAX [Concomitant]
     Indication: PRODUCT USED FOR UNKNOWN INDICATION
  6. ZOFRAN [Concomitant]
     Indication: PRODUCT USED FOR UNKNOWN INDICATION
  7. AMYTRIPTYLINE [Concomitant]
     Indication: PRODUCT USED FOR UNKNOWN INDICATION
  8. PAXIL [Concomitant]
     Indication: PRODUCT USED FOR UNKNOWN INDICATION
  9. OMEPRAZOLE [Concomitant]
     Indication: PRODUCT USED FOR UNKNOWN INDICATION
  10. RENEXA [Concomitant]
     Indication: PRODUCT USED FOR UNKNOWN INDICATION
  11. ANUSOL [Concomitant]
     Indication: PRODUCT USED FOR UNKNOWN INDICATION
     Route: 054
  12. COREG [Concomitant]
     Indication: PRODUCT USED FOR UNKNOWN INDICATION
  13. VICODIN [Concomitant]
     Indication: PRODUCT USED FOR UNKNOWN INDICATION

REACTIONS (4)
  - Exposed bone in jaw [Not Recovered/Not Resolved]
  - Gingivitis ulcerative [Not Recovered/Not Resolved]
  - Gingival disorder [Unknown]
  - Oral pain [Not Recovered/Not Resolved]
